FAERS Safety Report 8558174-7 (Version None)
Quarter: 2012Q3

REPORT INFORMATION
  Report Type: 
  Country: None (occurrence: None)
  Receive Date: 20120801
  Receipt Date: 20120725
  Transmission Date: 20120928
  Serious: Yes (Other)
  Sender: FDA-Public Use
  Company Number: JP-VERTEX PHARMACEUTICALS INC.-AE-2012-008495

PATIENT
  Age: 59 Year
  Sex: Female

DRUGS (8)
  1. PEG-INTRON [Concomitant]
     Indication: HEPATITIS C
     Route: 058
     Dates: start: 20120413
  2. URSO 250 [Concomitant]
     Route: 048
     Dates: end: 20120517
  3. REZALTAS [Concomitant]
     Route: 048
     Dates: end: 20120416
  4. TELAVIC (TELAPREVIR) [Suspect]
     Indication: HEPATITIS C
     Route: 048
     Dates: start: 20120413, end: 20120705
  5. URSODIOL [Concomitant]
     Route: 048
     Dates: start: 20120518
  6. RIBAVIRIN [Concomitant]
     Route: 048
     Dates: start: 20120629
  7. LOXOPROFEN [Concomitant]
     Route: 048
  8. RIBAVIRIN [Concomitant]
     Indication: HEPATITIS C
     Route: 048
     Dates: start: 20120413, end: 20120628

REACTIONS (6)
  - NAUSEA [None]
  - VOMITING [None]
  - PLATELET COUNT DECREASED [None]
  - HYPERURICAEMIA [None]
  - WHITE BLOOD CELL COUNT DECREASED [None]
  - ERYTHEMA MULTIFORME [None]
